FAERS Safety Report 23272672 (Version 1)
Quarter: 2023Q4

REPORT INFORMATION
  Report Type: Spontaneous
  Country: HR (occurrence: HR)
  Receive Date: 20231207
  Receipt Date: 20231207
  Transmission Date: 20240110
  Serious: Yes (Other)
  Sender: FDA-Public Use
  Company Number: None

PATIENT
  Age: 20 Year
  Sex: Female

DRUGS (3)
  1. IBUPROFEN [Suspect]
     Active Substance: IBUPROFEN
     Indication: Product used for unknown indication
     Dosage: 15 TABLETS
     Route: 048
     Dates: start: 20231016, end: 20231016
  2. TIANEPTINE SODIUM [Suspect]
     Active Substance: TIANEPTINE SODIUM
     Indication: Product used for unknown indication
     Dosage: 1125 MILLIGRAM, QD (90 TABLETS)
     Route: 048
     Dates: start: 20231016, end: 20231016
  3. ATOMOXETINE [Suspect]
     Active Substance: ATOMOXETINE
     Indication: Product used for unknown indication
     Dosage: 600 MILLIGRAM, QD (10 CAPSULES)
     Route: 048
     Dates: start: 20231016, end: 20231016

REACTIONS (4)
  - Suicide attempt [Unknown]
  - Bradykinesia [Unknown]
  - Somnolence [Unknown]
  - Intentional overdose [Unknown]

NARRATIVE: CASE EVENT DATE: 20231016
